FAERS Safety Report 5829045-1 (Version None)
Quarter: 2008Q3

REPORT INFORMATION
  Report Type: 
  Country: None (occurrence: None)
  Receive Date: 20080731
  Receipt Date: 20080721
  Transmission Date: 20090109
  Serious: Yes (Life-Threatening, Hospitalization, Other)
  Sender: FDA-Public Use
  Company Number: US-PURDUE-USA_2008_0034072

PATIENT
  Age: 17 Year
  Sex: Male

DRUGS (3)
  1. DILAUDID-HP [Suspect]
     Indication: PAIN
     Dosage: 1 MG, SEE TEXT
     Route: 042
     Dates: start: 20060907, end: 20060907
  2. TORADOL [Concomitant]
     Dates: start: 20060907
  3. PHENERGAN HCL [Concomitant]
     Dates: start: 20060907

REACTIONS (16)
  - ACCIDENTAL OVERDOSE [None]
  - ACUTE RESPIRATORY DISTRESS SYNDROME [None]
  - AGITATION [None]
  - ASPIRATION [None]
  - CYANOSIS [None]
  - INADEQUATE ANALGESIA [None]
  - INCORRECT DOSE ADMINISTERED [None]
  - INFLUENZA LIKE ILLNESS [None]
  - LUNG INJURY [None]
  - PNEUMONIA ASPIRATION [None]
  - PRURITUS [None]
  - PYREXIA [None]
  - RESPIRATORY FAILURE [None]
  - SNORING [None]
  - VOMITING [None]
  - VOMITING PROJECTILE [None]
